FAERS Safety Report 5083745-2 (Version None)
Quarter: 2006Q3

REPORT INFORMATION
  Report Type: 
  Country: None (occurrence: None)
  Receive Date: 20060814
  Receipt Date: 20060802
  Transmission Date: 20061208
  Serious: No
  Sender: FDA-Public Use
  Company Number: 2006-146224-NL

PATIENT
  Sex: Female

DRUGS (3)
  1. CHORIONIC GONADOTROPIN [Suspect]
     Indication: OVARIAN DISORDER
     Dosage: 5000 ID ONCE
  2. BUSERELIN ACETATE [Suspect]
     Indication: HYPOTHALAMO-PITUITARY DISORDERS
     Dosage: SUBCUTANEOUS
     Route: 058
  3. MENOTROPINS [Suspect]
     Indication: OVARIAN DISORDER
     Dosage: DF

REACTIONS (2)
  - DRUG EXPOSURE BEFORE PREGNANCY [None]
  - ECTOPIC PREGNANCY [None]
